FAERS Safety Report 12971242 (Version 1)
Quarter: 2016Q4

REPORT INFORMATION
  Report Type: Spontaneous
  Country: US (occurrence: US)
  Receive Date: 20161123
  Receipt Date: 20161123
  Transmission Date: 20170207
  Serious: No
  Sender: FDA-Public Use
  Company Number: US-JAZZ-JPI-P-029443

PATIENT
  Age: 45 Year
  Sex: Female

DRUGS (22)
  1. XYREM [Suspect]
     Active Substance: SODIUM OXYBATE
     Indication: INSOMNIA
     Dosage: 2.25 G, BID
     Route: 048
     Dates: start: 20061016
  2. FLAXSEED [Concomitant]
     Active Substance: FLAX SEED
  3. TOPAMAX [Concomitant]
     Active Substance: TOPIRAMATE
  4. ELMIRON [Concomitant]
     Active Substance: PENTOSAN POLYSULFATE SODIUM
  5. EPIPEN [Concomitant]
     Active Substance: EPINEPHRINE
  6. PROVIGIL [Concomitant]
     Active Substance: MODAFINIL
  7. VITAMIN D                          /00107901/ [Concomitant]
     Active Substance: ERGOCALCIFEROL
  8. EFFEXOR [Concomitant]
     Active Substance: VENLAFAXINE HYDROCHLORIDE
  9. PROVENTIL [Concomitant]
     Active Substance: ALBUTEROL
  10. HYDROXYZINE HYDROCHLORIDE. [Concomitant]
     Active Substance: HYDROXYZINE HYDROCHLORIDE
  11. PNV-DHA SOFTGEL [Concomitant]
  12. RECLAST [Concomitant]
     Active Substance: ZOLEDRONIC ACID
  13. CALTRATE                           /00944201/ [Concomitant]
     Active Substance: CALCIUM CARBONATE\CHOLECALCIFEROL
  14. LAMICTAL [Concomitant]
     Active Substance: LAMOTRIGINE
  15. RELPAX [Concomitant]
     Active Substance: ELETRIPTAN HYDROBROMIDE
  16. SYNTHROID [Concomitant]
     Active Substance: LEVOTHYROXINE SODIUM
  17. XYREM [Suspect]
     Active Substance: SODIUM OXYBATE
     Dosage: 4.5 G, BID
     Route: 048
     Dates: start: 20070205
  18. METHYLPREDNISOLONE. [Concomitant]
     Active Substance: METHYLPREDNISOLONE
  19. PROCTOSOL [Concomitant]
  20. XYREM [Suspect]
     Active Substance: SODIUM OXYBATE
     Indication: SLEEP PHASE RHYTHM DISTURBANCE
     Dosage: UNK UNKNOWN, SINGLE
     Route: 048
     Dates: end: 20070204
  21. NASCOBAL [Concomitant]
     Active Substance: CYANOCOBALAMIN
  22. XOLEGEL DUO [Concomitant]

REACTIONS (19)
  - Snoring [Not Recovered/Not Resolved]
  - Depression [Recovering/Resolving]
  - Disturbance in attention [Not Recovered/Not Resolved]
  - Irritability [Not Recovered/Not Resolved]
  - Headache [Not Recovered/Not Resolved]
  - Periodic limb movement disorder [Not Recovered/Not Resolved]
  - Myalgia [Not Recovered/Not Resolved]
  - Pain [Unknown]
  - Paraesthesia [Not Recovered/Not Resolved]
  - Hypersomnia [Not Recovered/Not Resolved]
  - Sleep disorder [Not Recovered/Not Resolved]
  - Poor quality sleep [Unknown]
  - Hypoaesthesia [Not Recovered/Not Resolved]
  - Neck pain [Not Recovered/Not Resolved]
  - Myositis [Not Recovered/Not Resolved]
  - Back pain [Not Recovered/Not Resolved]
  - Condition aggravated [Unknown]
  - Fatigue [Unknown]
  - Somnolence [Not Recovered/Not Resolved]

NARRATIVE: CASE EVENT DATE: 20080502
